FAERS Safety Report 7353164-4 (Version None)
Quarter: 2011Q1

REPORT INFORMATION
  Report Type: 
  Country: None (occurrence: None)
  Receive Date: 20110315
  Receipt Date: 20110310
  Transmission Date: 20110831
  Serious: Yes (Death, Hospitalization, Disabling)
  Sender: FDA-Public Use
  Company Number: GR-BAYER-201036042GPV

PATIENT
  Sex: Male
  Weight: 78 kg

DRUGS (16)
  1. CARVEDILOL [Concomitant]
     Indication: PROPHYLAXIS
  2. AVELOX [Concomitant]
     Indication: ANTIBIOTIC THERAPY
     Dosage: 400 MG (DAILY DOSE), QD, ORAL
     Route: 048
     Dates: start: 20100812, end: 20100819
  3. SOLOSA [Concomitant]
     Indication: DIABETES MELLITUS
     Dosage: 2 MG (DAILY DOSE), , ORAL
     Route: 048
     Dates: start: 20000101, end: 20100901
  4. CARVEDILOL [Concomitant]
     Indication: CORONARY ARTERY DISEASE
     Dosage: 25 MG (DAILY DOSE), , ORAL
     Route: 048
     Dates: start: 20061228, end: 20100901
  5. BRIKLIN [Suspect]
  6. SORAFENIB (RAF KINASE INHIBITOR) [Suspect]
     Indication: NON-SMALL CELL LUNG CANCER
     Route: 048
     Dates: start: 20100720, end: 20100806
  7. TRIATEC [Concomitant]
     Indication: PROPHYLAXIS
  8. LIPITOR [Concomitant]
     Indication: HYPERLIPIDAEMIA
     Dosage: 20 MG (DAILY DOSE), , ORAL
     Route: 048
     Dates: start: 20061228, end: 20100901
  9. PLAVIX [Concomitant]
     Indication: THROMBOSIS
     Dosage: 75 MG (DAILY DOSE), QD, ORAL
     Route: 048
     Dates: start: 20100812, end: 20100901
  10. GLUCOPHAGE [Concomitant]
     Indication: DIABETES MELLITUS
     Dosage: 850 MG (DAILY DOSE), , ORAL
     Route: 048
     Dates: start: 20000101, end: 20100901
  11. TRIATEC [Concomitant]
     Indication: ANTIBIOTIC THERAPY
     Dosage: 0.25 MG (DAILY DOSE), , ORAL
     Route: 048
     Dates: start: 20090901, end: 20100901
  12. ISCOVER [Concomitant]
     Indication: CORONARY ARTERY DISEASE
     Dosage: 75 MG (DAILY DOSE), , ORAL
     Route: 048
     Dates: start: 20090901, end: 20100901
  13. BEROVENT [Concomitant]
     Indication: PROPHYLAXIS
     Dosage: INHALED
     Dates: start: 20100811, end: 20100901
  14. PULMICORT [Concomitant]
     Indication: DYSPNOEA
     Dosage: INHALED
     Dates: start: 20100811, end: 20100901
  15. SOLU-CORTEF [Concomitant]
  16. EUCREAS [Concomitant]
     Indication: DIABETES MELLITUS
     Dosage: 850 MG (DAILY DOSE), , ORAL
     Route: 048
     Dates: start: 20080101

REACTIONS (3)
  - GENERAL PHYSICAL HEALTH DETERIORATION [None]
  - CEREBRAL ISCHAEMIA [None]
  - DEEP VEIN THROMBOSIS [None]
